FAERS Safety Report 5689824-0 (Version None)
Quarter: 2008Q1

REPORT INFORMATION
  Report Type: 
  Country: None (occurrence: None)
  Receive Date: 20080331
  Receipt Date: 20080331
  Transmission Date: 20080703
  Serious: Yes (Other)
  Sender: FDA-Public Use
  Company Number: None

PATIENT
  Age: 44 Year
  Sex: Male
  Weight: 95.2554 kg

DRUGS (2)
  1. SINGULAIR [Suspect]
     Indication: MULTIPLE ALLERGIES
     Dosage: NASAL
     Route: 045
     Dates: start: 20070401, end: 20080329
  2. SINGULAIR [Suspect]
     Indication: SINUS DISORDER
     Dosage: NASAL
     Route: 045
     Dates: start: 20070401, end: 20080329

REACTIONS (6)
  - ABNORMAL BEHAVIOUR [None]
  - AGGRESSION [None]
  - AGITATION [None]
  - DEPRESSION [None]
  - MOOD ALTERED [None]
  - PERSONALITY CHANGE [None]
